FAERS Safety Report 13487750 (Version 2)
Quarter: 2017Q2

REPORT INFORMATION
  Report Type: Spontaneous
  Country: DE (occurrence: DE)
  Receive Date: 20170426
  Receipt Date: 20170612
  Transmission Date: 20170830
  Serious: Yes (Hospitalization)
  Sender: FDA-Public Use
  Company Number: DE-INTERPRAG-PM-OCA2017-00316

PATIENT

DRUGS (3)
  1. OCALIVA [Suspect]
     Active Substance: OBETICHOLIC ACID
     Indication: BILIARY CIRRHOSIS PRIMARY
     Dosage: 5 MG, QD
     Route: 048
     Dates: start: 201703, end: 20170413
  2. UDCA [Concomitant]
     Active Substance: URSODIOL
  3. OCALIVA [Suspect]
     Active Substance: OBETICHOLIC ACID
     Indication: ANTIMITOCHONDRIAL ANTIBODY

REACTIONS (3)
  - Jaundice [Not Recovered/Not Resolved]
  - Child-Pugh-Turcotte score increased [Not Recovered/Not Resolved]
  - Hyperbilirubinaemia [Not Recovered/Not Resolved]

NARRATIVE: CASE EVENT DATE: 20170413
